FAERS Safety Report 4878146-3 (Version None)
Quarter: 2005Q4

REPORT INFORMATION
  Report Type: 
  Country: None (occurrence: None)
  Receive Date: 20051212
  Receipt Date: 20050920
  Transmission Date: 20060501
  Serious: No
  Sender: FDA-Public Use
  Company Number: 2005-01410

PATIENT
  Age: 49 Year
  Sex: Female
  Weight: 47.6 kg

DRUGS (11)
  1. VELCADE [Suspect]
     Indication: MULTIPLE MYELOMA
     Dosage: 1.80 MG, INTRAVENOUS
     Route: 042
     Dates: start: 20050321, end: 20050512
  2. DOXIL [Suspect]
     Indication: MULTIPLE MYELOMA
     Dosage: 42.00 MG
     Dates: start: 20050414, end: 20050505
  3. CYTOXAN [Suspect]
     Indication: MULTIPLE MYELOMA
     Dosage: 1000.00
     Dates: start: 20050414, end: 20050505
  4. CYTOXAN [Suspect]
     Indication: MULTIPLE MYELOMA
     Dosage: 1000.00
     Dates: start: 20050527, end: 20050715
  5. PRILOSEC [Concomitant]
  6. VITAMIN B6 [Concomitant]
  7. VITAMN B COMPLEX (PYRIDOXINE HYDROCHLORIDE, RIBOFLAVIN, CALCIUIM PANTO [Concomitant]
  8. MILK THISTLE [Concomitant]
  9. DARVOCET-N (PARACETAMOL, DEXTROPROPOXYPHENE NAPSILATE) [Concomitant]
  10. XANAX [Concomitant]
  11. IRON (IRON) [Concomitant]

REACTIONS (6)
  - DISEASE PROGRESSION [None]
  - EYELID PTOSIS [None]
  - METASTASES TO BONE [None]
  - NEUROPATHY PERIPHERAL [None]
  - RASH PRURITIC [None]
  - VISUAL DISTURBANCE [None]
